FAERS Safety Report 7971850-X (Version None)
Quarter: 2011Q4

REPORT INFORMATION
  Report Type: 
  Country: None (occurrence: None)
  Receive Date: 20111212
  Receipt Date: 20111208
  Transmission Date: 20120403
  Serious: Yes (Death, Other)
  Sender: FDA-Public Use
  Company Number: US-AMGEN-USASP2011065615

PATIENT
  Age: 79 Year
  Sex: Male

DRUGS (3)
  1. PROCRIT [Concomitant]
  2. NEUPOGEN [Concomitant]
  3. NPLATE [Suspect]
     Indication: APLASTIC ANAEMIA
     Dates: start: 20110525, end: 20110706

REACTIONS (3)
  - MYELODYSPLASTIC SYNDROME [None]
  - DRUG INEFFECTIVE [None]
  - DEATH [None]
